FAERS Safety Report 17425231 (Version 1)
Quarter: 2020Q1

REPORT INFORMATION
  Report Type: Spontaneous
  Country: BE (occurrence: BE)
  Receive Date: 20200217
  Receipt Date: 20200217
  Transmission Date: 20200409
  Serious: Yes (Other)
  Sender: FDA-Public Use
  Company Number: NVSC2020BE036379

PATIENT
  Sex: Female

DRUGS (3)
  1. RANITIDINE. [Suspect]
     Active Substance: RANITIDINE
     Indication: PRODUCT USED FOR UNKNOWN INDICATION
     Dosage: 1 DF, QD (DOSE TAKEN IN THE MORNING)
     Route: 065
  2. AERIUS (DESLORATADINE) [Suspect]
     Active Substance: DESLORATADINE
     Indication: PRODUCT USED FOR UNKNOWN INDICATION
     Dosage: 1 DF, QD (DOSE TAKEN IN THE EVENING)
     Route: 065
  3. MONTELUKAST [Suspect]
     Active Substance: MONTELUKAST SODIUM
     Indication: PRODUCT USED FOR UNKNOWN INDICATION
     Dosage: 2 DF, QD (DOSE TAKEN ONE IN THE MORNING AND ONE IN THE EVENING)
     Route: 065

REACTIONS (33)
  - Asthma [Recovering/Resolving]
  - Vision blurred [Recovering/Resolving]
  - Pancreatitis [Unknown]
  - Insomnia [Recovering/Resolving]
  - Chromaturia [Recovering/Resolving]
  - Amnesia [Recovering/Resolving]
  - Confusional state [Recovering/Resolving]
  - Suffocation feeling [Recovering/Resolving]
  - Suicidal ideation [Recovering/Resolving]
  - Hepatitis [Recovering/Resolving]
  - Abnormal behaviour [Recovering/Resolving]
  - Abdominal pain upper [Recovering/Resolving]
  - Cough [Recovering/Resolving]
  - Dyspepsia [Recovering/Resolving]
  - Swelling face [Recovering/Resolving]
  - Arthralgia [Recovering/Resolving]
  - Abdominal pain upper [Not Recovered/Not Resolved]
  - Oedema [Recovering/Resolving]
  - Restlessness [Recovering/Resolving]
  - Disturbance in attention [Recovering/Resolving]
  - Productive cough [Recovering/Resolving]
  - Erythema [Recovering/Resolving]
  - Diarrhoea [Recovering/Resolving]
  - Hallucination [Recovering/Resolving]
  - Anxiety [Recovering/Resolving]
  - Headache [Recovering/Resolving]
  - Dry mouth [Recovering/Resolving]
  - Lung disorder [Recovering/Resolving]
  - Thirst [Recovering/Resolving]
  - Dizziness [Recovering/Resolving]
  - Body temperature increased [Recovering/Resolving]
  - Myalgia [Recovering/Resolving]
  - Gastrooesophageal reflux disease [Recovering/Resolving]
